FAERS Safety Report 7803002-8 (Version None)
Quarter: 2011Q4

REPORT INFORMATION
  Report Type: 
  Country: None (occurrence: None)
  Receive Date: 20111007
  Receipt Date: 20110928
  Transmission Date: 20120403
  Serious: Yes (Other)
  Sender: FDA-Public Use
  Company Number: US-BRISTOL-MYERS SQUIBB COMPANY-16108961

PATIENT

DRUGS (2)
  1. LOVENOX [Suspect]
  2. COUMADIN [Suspect]
     Dosage: START WITH 5 MGREDUCED TO 2 MG DAILY,AGAIN TAKEN 5MG THEN REDUCED TO 2MG

REACTIONS (1)
  - THROMBOSIS [None]
